FAERS Safety Report 8591753-X (Version None)
Quarter: 2012Q3

REPORT INFORMATION
  Report Type: 
  Country: None (occurrence: None)
  Receive Date: 20120814
  Receipt Date: 20120809
  Transmission Date: 20120928
  Serious: Yes (Hospitalization, Other)
  Sender: FDA-Public Use
  Company Number: PHHY2012BR069606

PATIENT
  Age: 66 Year
  Sex: Female

DRUGS (5)
  1. BEROTEC [Concomitant]
     Dosage: UNK UKN, UNK
  2. FORMOTEROL FUMARATE [Suspect]
     Indication: EMPHYSEMA
     Dosage: 1 DF,  TWICE DAILY ON MORNIG AND AT NIGHT
  3. COMBIVENT [Concomitant]
     Dosage: UNK UKN, UNK
  4. FORMOTEROL FUMARATE [Suspect]
     Indication: BRONCHITIS CHRONIC
     Dosage: UNK UG, UNK
  5. DUOVENT [Concomitant]
     Dosage: UNK UKN, UNK

REACTIONS (7)
  - FALL [None]
  - EATING DISORDER [None]
  - CONFUSIONAL STATE [None]
  - SCREAMING [None]
  - EXPIRED DRUG ADMINISTERED [None]
  - GAIT DISTURBANCE [None]
  - HYPERTENSION [None]
